FAERS Safety Report 24188741 (Version 1)
Quarter: 2024Q3

REPORT INFORMATION
  Report Type: Spontaneous
  Country: US (occurrence: None)
  Receive Date: 20240806
  Receipt Date: 20240806
  Transmission Date: 20241017
  Serious: Yes (Other)
  Sender: Public
  Company Number: None

PATIENT
  Age: 65 Year
  Sex: Female
  Weight: 127.91 kg

DRUGS (1)
  1. LUMASON [Suspect]
     Active Substance: SULFUR HEXAFLUORIDE
     Dosage: 5 MG/ML ONCE INTRAVENOUS
     Route: 042

REACTIONS (1)
  - Blood pressure increased [None]

NARRATIVE: CASE EVENT DATE: 20240806
